FAERS Safety Report 5520908-3 (Version None)
Quarter: 2007Q4

REPORT INFORMATION
  Report Type: 
  Country: None (occurrence: None)
  Receive Date: 20071116
  Receipt Date: 20071116
  Transmission Date: 20080405
  Serious: Yes (Life-Threatening, Hospitalization)
  Sender: FDA-Public Use
  Company Number: None

PATIENT
  Age: 88 Year
  Sex: Female
  Weight: 50.3493 kg

DRUGS (1)
  1. SULFAMETHOXAZOLE/TRIMETHOPRIM 400MG/80MG [Suspect]
     Indication: STAPHYLOCOCCAL SKIN INFECTION
     Dates: start: 20070905, end: 20070912

REACTIONS (1)
  - STEVENS-JOHNSON SYNDROME [None]
